FAERS Safety Report 17488344 (Version 2)
Quarter: 2022Q2

REPORT INFORMATION
  Report Type: Report from Study
  Country: CH (occurrence: CH)
  Receive Date: 20200303
  Receipt Date: 20220405
  Transmission Date: 20220721
  Serious: Yes (Congenital Anomaly, Other)
  Sender: FDA-Public Use
  Company Number: CH-SA-2020SA050333

PATIENT

DRUGS (7)
  1. ZOLPIDEM TARTRATE [Suspect]
     Active Substance: ZOLPIDEM TARTRATE
     Indication: Maternal exposure during pregnancy
     Dosage: UNK
     Route: 064
  2. ALPRAZOLAM [Suspect]
     Active Substance: ALPRAZOLAM
     Indication: Maternal exposure during pregnancy
     Dosage: UNK
     Route: 064
  3. SERTRALINE [Suspect]
     Active Substance: SERTRALINE HYDROCHLORIDE
     Indication: Maternal exposure during pregnancy
     Dosage: UNK
     Route: 064
  4. OLANZAPINE [Suspect]
     Active Substance: OLANZAPINE
     Indication: Maternal exposure during pregnancy
     Dosage: UNK
     Route: 064
  5. ESOMEPRAZOLE [Suspect]
     Active Substance: ESOMEPRAZOLE
     Indication: Maternal exposure during pregnancy
     Dosage: UNK
     Route: 064
  6. SUMATRIPTAN SUCCINATE [Suspect]
     Active Substance: SUMATRIPTAN SUCCINATE
     Indication: Maternal exposure during pregnancy
     Dosage: UNK
     Route: 064
  7. DOMPERIDONE [Suspect]
     Active Substance: DOMPERIDONE
     Indication: Maternal exposure during pregnancy
     Dosage: UNK
     Route: 064

REACTIONS (2)
  - Congenital musculoskeletal disorder [Unknown]
  - Foetal exposure during pregnancy [Unknown]
